FAERS Safety Report 9204093 (Version 1)
Quarter: 2013Q1

REPORT INFORMATION
  Report Type: Spontaneous
  Country: US (occurrence: None)
  Receive Date: 20130329
  Receipt Date: 20130329
  Transmission Date: 20140127
  Serious: Yes (Other)
  Sender: FDA-Public Use
  Company Number: 001497085A

PATIENT
  Age: 68 Year
  Sex: Female

DRUGS (5)
  1. MB* ANTIOXIDANT DAY CREME SPF 20 [Suspect]
     Dosage: TWICE DAILY DERMAL
     Route: 062
     Dates: start: 20130301, end: 20130303
  2. MEANINGFUL BEAUTY CINDY CRAWFORD SKIN BRIGHTENING DECOLLETE AND NECK TREATMENT SPF 15 [Suspect]
     Dosage: TWICE DAILY DERMAL
     Route: 062
     Dates: start: 20130301, end: 20130303
  3. OSTEOFLEX [Concomitant]
  4. VITAMIN B COMPLEX [Concomitant]
  5. FISH OIL [Concomitant]

REACTIONS (5)
  - Eye pruritus [None]
  - Eye swelling [None]
  - Pruritus [None]
  - Respiratory disorder [None]
  - Drug hypersensitivity [None]
